FAERS Safety Report 4833210-X (Version None)
Quarter: 2005Q4

REPORT INFORMATION
  Report Type: 
  Country: None (occurrence: None)
  Receive Date: 20051121
  Receipt Date: 20051111
  Transmission Date: 20060501
  Serious: Yes (Other)
  Sender: FDA-Public Use
  Company Number: DE-JNJFOC-20051103593

PATIENT
  Sex: Female
  Weight: 75 kg

DRUGS (2)
  1. RISPERDAL CONSTA [Suspect]
     Route: 030
  2. RISPERDAL CONSTA [Suspect]
     Route: 030

REACTIONS (3)
  - IMMOBILE [None]
  - MOTOR DYSFUNCTION [None]
  - SALIVARY HYPERSECRETION [None]
